FAERS Safety Report 9842919 (Version 1)
Quarter: 2013Q4

REPORT INFORMATION
  Report Type: Spontaneous
  Country: US (occurrence: None)
  Receive Date: 20131223
  Receipt Date: 20131223
  Transmission Date: 20140711
  Serious: No
  Sender: FDA-Public Use
  Company Number: 217190LEO

PATIENT
  Sex: Female

DRUGS (5)
  1. PICATO (0.05 %, GEL) [Suspect]
     Indication: ACTINIC KERATOSIS
     Route: 061
     Dates: start: 20120505
  2. BYSTOLIC (NEBIVOLOL HYDROCHLORIDE) [Concomitant]
  3. HCTZ (HYDROCHLOROTHIAZIDE) [Concomitant]
  4. PEPCID AC (FAMOTIDINE) [Concomitant]
  5. MULTIVITAMIN (MULTIVITAMIN) [Concomitant]

REACTIONS (4)
  - Application site pain [None]
  - Application site warmth [None]
  - Application site erythema [None]
  - Drug administered at inappropriate site [None]
